FAERS Safety Report 11696886 (Version 4)
Quarter: 2018Q2

REPORT INFORMATION
  Report Type: Spontaneous
  Country: JP (occurrence: JP)
  Receive Date: 20151104
  Receipt Date: 20180430
  Transmission Date: 20180711
  Serious: Yes (Other)
  Sender: FDA-Public Use
  Company Number: JP-PFIZER INC-2015366093

PATIENT
  Sex: Female
  Weight: 1.97 kg

DRUGS (12)
  1. OXYGEN. [Suspect]
     Active Substance: OXYGEN
     Indication: PERSISTENT FOETAL CIRCULATION
     Dosage: FRACTION OF INSPIRED OXYGEN (FIO2) OF 1.0
  2. EPOPROSTENOL. [Concomitant]
     Active Substance: EPOPROSTENOL
     Indication: PERSISTENT FOETAL CIRCULATION
     Dosage: 0.01 UG/KG/MINUTE
  3. DOPAMINE [Concomitant]
     Active Substance: DOPAMINE\DOPAMINE HYDROCHLORIDE
     Dosage: UNK
  4. SILDENAFIL CITRATE. [Suspect]
     Active Substance: SILDENAFIL CITRATE
     Dosage: 4 MG/KG, DAILY
  5. NITROUS OXIDE. [Concomitant]
     Active Substance: NITROUS OXIDE
     Dosage: UNK
     Route: 055
  6. NITRIC OXIDE. [Concomitant]
     Active Substance: NITRIC OXIDE
     Indication: PERSISTENT FOETAL CIRCULATION
     Dosage: UNK
  7. DOBUTAMINE [Concomitant]
     Active Substance: DOBUTAMINE\DOBUTAMINE HYDROCHLORIDE
     Dosage: UNK
  8. SILDENAFIL CITRATE. [Suspect]
     Active Substance: SILDENAFIL CITRATE
     Indication: PERSISTENT FOETAL CIRCULATION
     Dosage: 1 MG/KG, DAILY
  9. SILDENAFIL CITRATE. [Suspect]
     Active Substance: SILDENAFIL CITRATE
     Dosage: 4 MG/KG, DAILY
  10. SILDENAFIL CITRATE. [Suspect]
     Active Substance: SILDENAFIL CITRATE
     Dosage: 1 MG/KG, DAILY
  11. MILRINONE [Concomitant]
     Active Substance: MILRINONE
     Indication: PERSISTENT FOETAL CIRCULATION
     Dosage: UNK
  12. FENTANYL. [Concomitant]
     Active Substance: FENTANYL
     Dosage: 1.5 UG/KG/HOUR

REACTIONS (2)
  - Retinopathy of prematurity [Unknown]
  - Drug administered to patient of inappropriate age [Unknown]
